FAERS Safety Report 5160278-6 (Version None)
Quarter: 2006Q4

REPORT INFORMATION
  Report Type: 
  Country: None (occurrence: None)
  Receive Date: 20061129
  Receipt Date: 20061002
  Transmission Date: 20070319
  Serious: Yes (Hospitalization)
  Sender: FDA-Public Use
  Company Number: JP-JPN-A200603985

PATIENT
  Age: 62 Year
  Sex: Male

DRUGS (10)
  1. SEREVENT [Suspect]
     Indication: ASTHMA
     Dosage: 50MCG TWICE PER DAY
     Route: 055
     Dates: start: 20060401, end: 20060923
  2. FLUTIDE [Suspect]
     Indication: DRUG USE FOR UNKNOWN INDICATION
     Route: 055
     Dates: start: 20060405, end: 20060509
  3. NORVASC [Concomitant]
     Indication: HYPERTENSION
     Dosage: 1.25MG PER DAY
     Route: 048
  4. UNKNOWN MEDICATION [Concomitant]
     Indication: ANGINA PECTORIS
     Dosage: 40MG PER DAY
     Route: 048
  5. SIGMART [Concomitant]
     Indication: ANGINA PECTORIS
     Route: 048
  6. NITOROL [Concomitant]
     Indication: ANGINA PECTORIS
     Dosage: 5MG PER DAY
     Route: 048
  7. DAI-KENCHU-TO [Concomitant]
     Indication: ABDOMINAL DISTENSION
     Dosage: 7.5G PER DAY
     Route: 048
  8. CHINESE HERBAL MEDICINE [Concomitant]
     Indication: PRODUCTIVE COUGH
     Dosage: 9G PER DAY
     Route: 048
  9. QVAR 40 [Concomitant]
     Indication: ASTHMA
     Route: 055
  10. HERBESSER [Concomitant]

REACTIONS (3)
  - ASTHMA [None]
  - BRONCHITIS [None]
  - PRURITUS [None]
